FAERS Safety Report 18174685 (Version 1)
Quarter: 2020Q3

REPORT INFORMATION
  Report Type: Spontaneous
  Country: US (occurrence: US)
  Receive Date: 20200820
  Receipt Date: 20200820
  Transmission Date: 20201103
  Serious: No
  Sender: FDA-Public Use
  Company Number: US-PFIZER INC-2020320950

PATIENT
  Age: 45 Year
  Sex: Female

DRUGS (1)
  1. XELJANZ XR [Suspect]
     Active Substance: TOFACITINIB CITRATE
     Indication: MAST CELL ACTIVATION SYNDROME
     Dosage: UNK

REACTIONS (3)
  - Increased appetite [Unknown]
  - Drug effective for unapproved indication [Unknown]
  - Off label use [Unknown]
